FAERS Safety Report 11864770 (Version 2)
Quarter: 2016Q2

REPORT INFORMATION
  Report Type: Spontaneous
  Country: BR (occurrence: BR)
  Receive Date: 20151221
  Receipt Date: 20160509
  Transmission Date: 20160815
  Serious: Yes (Other)
  Sender: FDA-Public Use
  Company Number: BR-JNJFOC-20151214803

PATIENT
  Sex: Female

DRUGS (2)
  1. METICORTEN [Concomitant]
     Active Substance: PREDNISONE
     Route: 065
  2. REMICADE [Suspect]
     Active Substance: INFLIXIMAB
     Indication: RHEUMATOID ARTHRITIS
     Dosage: END DATE AUG/SEP 2015
     Route: 042
     Dates: end: 201509

REACTIONS (2)
  - Drug effect incomplete [Unknown]
  - Liver disorder [Unknown]
